FAERS Safety Report 23078499 (Version 2)
Quarter: 2023Q4

REPORT INFORMATION
  Report Type: Spontaneous
  Country: JP (occurrence: JP)
  Receive Date: 20231018
  Receipt Date: 20231102
  Transmission Date: 20240110
  Serious: Yes (Other)
  Sender: FDA-Public Use
  Company Number: JP-BAYER-2023A143783

PATIENT
  Age: 89 Year
  Sex: Male

DRUGS (8)
  1. EYLEA [Suspect]
     Active Substance: AFLIBERCEPT
     Indication: Neovascular age-related macular degeneration
     Dosage: LEFT EYE, 2MG/ONE TIME, TOTAL 21 TIMES; SOLUTION FOR INJECTION; STRENGTH: 40 MG/ML
     Route: 031
     Dates: start: 201301
  2. EYLEA [Suspect]
     Active Substance: AFLIBERCEPT
     Dosage: LEFT EYE, 2MG/ONE TIME, ON AN AS-NEEDED BASIS; SOLUTION FOR INJECTION, STRENGTH: 40 MG/ML
     Route: 031
     Dates: start: 201606
  3. EYLEA [Suspect]
     Active Substance: AFLIBERCEPT
     Dosage: LEFT EYE, 2MG/ONE TIME, EVERY 2 MONTHS; SOLUTION FOR INJECTION; STRENGTH: 40 MG/ML
     Route: 031
  4. EYLEA [Suspect]
     Active Substance: AFLIBERCEPT
     Dosage: LEFT EYE, 2MG/ONE TIME, EVERY 6 WEEKS; SOLUTION FOR INJECTION; STRENGTH: 40 MG/ML
     Route: 031
     Dates: start: 201902
  5. EYLEA [Suspect]
     Active Substance: AFLIBERCEPT
     Dosage: LEFT EYE, 2MG/ONE TIME, EVERY 2 MONTHS; SOLUTION FOR INJECTION; STRENGTH: 40 MG/ML
     Route: 031
     Dates: start: 201910
  6. EYLEA [Suspect]
     Active Substance: AFLIBERCEPT
     Dosage: LEFT EYE, 2MG/ONE TIME, EVERY 6 WEEKS; SOLUTION FOR INJECTION; STRENGTH: 40 MG/ML
     Route: 031
     Dates: start: 202202
  7. EYLEA [Suspect]
     Active Substance: AFLIBERCEPT
     Dosage: LEFT EYE, 2MG/ONE TIME, EVERY 5 WEEK; SOLUTION FOR INJECTION; STRENGTH: 40 MG/ML
     Route: 031
  8. EYLEA [Suspect]
     Active Substance: AFLIBERCEPT
     Dosage: LEFT EYE, 2MG/ONE TIME, EVERY 4 WEEKS; SOLUTION FOR INJECTION; STRENGTH: 40 MG/ML
     Route: 031
     Dates: end: 202206

REACTIONS (4)
  - Retinal haemorrhage [Recovering/Resolving]
  - Inappropriate schedule of product administration [Unknown]
  - Therapeutic product effect incomplete [Unknown]
  - Visual acuity reduced [Not Recovered/Not Resolved]

NARRATIVE: CASE EVENT DATE: 20160601
